FAERS Safety Report 22085229 (Version 2)
Quarter: 2023Q1

REPORT INFORMATION
  Report Type: Report from Study
  Country: CA (occurrence: CA)
  Receive Date: 20230310
  Receipt Date: 20230327
  Transmission Date: 20230417
  Serious: Yes (Hospitalization, Disabling, Other)
  Sender: FDA-Public Use
  Company Number: CA-BRISTOL-MYERS SQUIBB COMPANY-2023-031654

PATIENT
  Age: 20 Year
  Sex: Male
  Weight: 82.5 kg

DRUGS (4)
  1. REBLOZYL [Suspect]
     Active Substance: LUSPATERCEPT-AAMT
     Indication: Thalassaemia beta
     Dosage: DOSE : 100 MG;     FREQ : Q 3 WEEKS
     Route: 058
     Dates: start: 20211201, end: 20230223
  2. REBLOZYL [Suspect]
     Active Substance: LUSPATERCEPT-AAMT
     Dosage: DOSE : 100 MG;     FREQ : Q 3 WEEKS
     Route: 058
     Dates: start: 20211207, end: 20230221
  3. DEFERASIROX [Concomitant]
     Active Substance: DEFERASIROX
     Indication: Blood iron increased
     Route: 048
     Dates: start: 20160226
  4. DEFERIPRONE [Concomitant]
     Active Substance: DEFERIPRONE
     Indication: Blood iron increased
     Route: 048
     Dates: start: 20161006

REACTIONS (4)
  - Paralysis [Unknown]
  - Spinal cord compression [Unknown]
  - Vertebral column mass [Unknown]
  - Extramedullary haemopoiesis [Unknown]

NARRATIVE: CASE EVENT DATE: 20230111
